FAERS Safety Report 4862221-3 (Version None)
Quarter: 2005Q4

REPORT INFORMATION
  Report Type: 
  Country: None (occurrence: None)
  Receive Date: 20051201
  Receipt Date: 20050812
  Transmission Date: 20060501
  Serious: No
  Sender: FDA-Public Use
  Company Number: 2005PV001171

PATIENT
  Age: 67 Year
  Sex: Female
  Weight: 86.1834 kg

DRUGS (9)
  1. BYETTA [Suspect]
     Indication: DIABETES MELLITUS NON-INSULIN-DEPENDENT
     Dosage: 5 MCG; BID; SC
     Route: 058
     Dates: start: 20050805
  2. METFORMIN [Concomitant]
  3. AVANDIA [Concomitant]
  4. AMARYL [Concomitant]
  5. ZOCOR [Concomitant]
  6. LOTREL [Concomitant]
  7. ARIMIDEX [Concomitant]
  8. ALPHA-BETIC [Concomitant]
  9. AMARYL [Concomitant]

REACTIONS (3)
  - BLOOD GLUCOSE INCREASED [None]
  - DRUG INEFFECTIVE [None]
  - INJECTION SITE BRUISING [None]
